FAERS Safety Report 13972381 (Version 2)
Quarter: 2018Q3

REPORT INFORMATION
  Report Type: Spontaneous
  Country: US (occurrence: US)
  Receive Date: 20170914
  Receipt Date: 20180913
  Transmission Date: 20181010
  Serious: No
  Sender: FDA-Public Use
  Company Number: US-ASTELLAS-2016US048743

PATIENT
  Sex: Male

DRUGS (2)
  1. XTANDI [Suspect]
     Active Substance: ENZALUTAMIDE
     Indication: PROSTATE CANCER
     Route: 048
     Dates: start: 20161118
  2. XTANDI [Suspect]
     Active Substance: ENZALUTAMIDE
     Indication: NEOPLASM MALIGNANT

REACTIONS (16)
  - Eye discharge [Unknown]
  - Faeces hard [Unknown]
  - Dry throat [Unknown]
  - Pain [Unknown]
  - Hypoaesthesia [Unknown]
  - Diarrhoea [Unknown]
  - Headache [Unknown]
  - Product storage error [Unknown]
  - Urine analysis abnormal [Recovered/Resolved]
  - Dyspnoea exertional [Unknown]
  - Fatigue [Unknown]
  - Lung disorder [Unknown]
  - Hyperhidrosis [Not Recovered/Not Resolved]
  - Infection [Unknown]
  - Constipation [Not Recovered/Not Resolved]
  - Product physical issue [Unknown]
